FAERS Safety Report 7141358-2 (Version None)
Quarter: 2010Q4

REPORT INFORMATION
  Report Type: 
  Country: None (occurrence: None)
  Receive Date: 20101122
  Receipt Date: 20101108
  Transmission Date: 20110411
  Serious: No
  Sender: FDA-Public Use
  Company Number: APP201000960

PATIENT
  Age: 29 Year
  Sex: Female

DRUGS (2)
  1. VANCOMYCIN HYDROCHLORIDE [Suspect]
     Indication: CELLULITIS
     Dosage: INTRAVENOUS (NOT OTHERWISE SPECIFIED)
     Route: 042
  2. COUMADIN [Suspect]
     Indication: DEEP VEIN THROMBOSIS

REACTIONS (5)
  - CAPILLARITIS [None]
  - CELLULITIS [None]
  - HAEMATOCRIT DECREASED [None]
  - INTERNATIONAL NORMALISED RATIO INCREASED [None]
  - PULMONARY ALVEOLAR HAEMORRHAGE [None]
